FAERS Safety Report 18063344 (Version 2)
Quarter: 2020Q4

REPORT INFORMATION
  Report Type: Spontaneous
  Country: US (occurrence: US)
  Receive Date: 20200724
  Receipt Date: 20201210
  Transmission Date: 20210113
  Serious: Yes (Other)
  Sender: FDA-Public Use
  Company Number: US-TEVA-2020-US-1804952

PATIENT
  Sex: Male

DRUGS (26)
  1. ATORVASTATIN [Concomitant]
     Active Substance: ATORVASTATIN
     Indication: BLOOD CHOLESTEROL INCREASED
     Dosage: 40 MILLIGRAM DAILY; 40 MG, ONCE PER DAY
     Dates: start: 2006
  2. VALSARTAN QUALITEST [Suspect]
     Active Substance: VALSARTAN
     Indication: HYPERTENSION
     Dosage: DOSAGE: 160MILLIGRAMS
     Route: 065
     Dates: start: 20160217, end: 20160510
  3. INSULIN [Concomitant]
     Active Substance: INSULIN NOS
     Indication: DIABETES MELLITUS
  4. LIPITOR [Concomitant]
     Active Substance: ATORVASTATIN CALCIUM
     Indication: BLOOD CHOLESTEROL INCREASED
  5. ALLOPURINOL. [Concomitant]
     Active Substance: ALLOPURINOL
     Indication: GOUT
     Dosage: 300 MILLIGRAM DAILY; 300 MG ONCE PER DAY
     Dates: start: 1997
  6. LANTUS [Concomitant]
     Active Substance: INSULIN GLARGINE
     Indication: DIABETES MELLITUS
     Dosage: DOSAGE: 40 UNITS PER DAY
     Dates: end: 2016
  7. TRESIBA [Concomitant]
     Active Substance: INSULIN DEGLUDEC
     Indication: DIABETES MELLITUS
     Dosage: DOSAGE: 40 UNITS PER DAY
     Dates: end: 2016
  8. POTASSIUM [Concomitant]
     Active Substance: POTASSIUM
     Dosage: 500 MILLIGRAM DAILY; 1 CAPSULE PER DAY: 500 MG
     Dates: start: 2017
  9. VALSARTAN/HYDROCHLOROTHIAZIDE TEVA [Suspect]
     Active Substance: HYDROCHLOROTHIAZIDE\VALSARTAN
     Indication: HYPERTENSION
     Dosage: DOSAGE: 320-12.5MG
     Route: 065
     Dates: start: 20140324, end: 20150523
  10. VALSARTAN/HYDROCHLOROTHIAZIDE TEVA [Suspect]
     Active Substance: HYDROCHLOROTHIAZIDE\VALSARTAN
     Dosage: DOSAGE: 320-12.5MG
     Route: 065
     Dates: start: 20150526, end: 20150625
  11. VITAMIN D [Concomitant]
     Active Substance: VITAMIN D NOS
     Dosage: 3000 UNITS PER DAY
     Dates: start: 2017
  12. VALSARTAN OHM [Suspect]
     Active Substance: VALSARTAN
     Dosage: DOSAGE: 320MILLIGRAMS
     Route: 065
     Dates: start: 20160509, end: 20160703
  13. VALSARTAN/HYDROCHLOROTHIAZIDE TEVA [Suspect]
     Active Substance: HYDROCHLOROTHIAZIDE\VALSARTAN
     Dosage: DOSAGE: 320-12.5MG
     Route: 065
     Dates: start: 20150330, end: 20150527
  14. VALSARTAN OHM [Suspect]
     Active Substance: VALSARTAN
     Indication: HYPERTENSION
     Dosage: DOSAGE: 160MILLIGRAMS
     Route: 065
     Dates: start: 20150903, end: 20160114
  15. OMEPRAZOLE. [Concomitant]
     Active Substance: OMEPRAZOLE
     Indication: GASTROOESOPHAGEAL REFLUX DISEASE
  16. IRON [Concomitant]
     Active Substance: IRON
     Dosage: 18 MILLIGRAM DAILY; 18 MG: 1 CAPSULE PER DAY
     Dates: start: 2017
  17. VALSARTAN/HYDROCHLOROTHIAZIDE ACETERIS/AUROBINDO [Suspect]
     Active Substance: HYDROCHLOROTHIAZIDE\VALSARTAN
     Dosage: DOSAGE: 320-12.5MG
     Route: 065
     Dates: start: 20150629, end: 20150729
  18. VALSARTAN/HYDROCHLOROTHIAZIDE ACETERIS/AUROBINDO [Suspect]
     Active Substance: HYDROCHLOROTHIAZIDE\VALSARTAN
     Dosage: DOSAGE: 320-12.5MG
     Route: 065
     Dates: start: 20160629, end: 20161214
  19. VALSARTAN OHM [Suspect]
     Active Substance: VALSARTAN
     Dosage: DOSAGE: 320MILLIGRAMS
     Route: 065
     Dates: start: 20151223, end: 20160218
  20. DILTIAZEM. [Concomitant]
     Active Substance: DILTIAZEM
     Indication: HYPERTENSION
     Dosage: 240 MILLIGRAM DAILY; 240MILLIGRAM ONCE PER DAY
     Dates: start: 2006
  21. CENTRUM SILVER [Concomitant]
     Active Substance: MINERALS\VITAMINS
     Dosage: 1 TABLET PER DAY
     Dates: start: 2017
  22. VALSARTAN/HYDROCHLOROTHIAZIDE TEVA [Suspect]
     Active Substance: HYDROCHLOROTHIAZIDE\VALSARTAN
     Dosage: DOSAGE: 320-12.5MG
     Route: 065
     Dates: start: 20140529, end: 20150213
  23. VALSARTAN/HYDROCHLOROTHIAZIDE ACETERIS/AUROBINDO [Suspect]
     Active Substance: HYDROCHLOROTHIAZIDE\VALSARTAN
     Indication: HYPERTENSION
     Dosage: DOSAGE: 320-12.5MG
     Route: 065
     Dates: start: 20150301, end: 20150330
  24. VALSARTAN/HYDROCHLOROTHIAZIDE OHM [Suspect]
     Active Substance: HYDROCHLOROTHIAZIDE\VALSARTAN
     Indication: HYPERTENSION
     Dosage: DOSAGE: 160MILLIGRAMS
     Route: 065
     Dates: start: 20170227, end: 20170329
  25. ALBUTEROL. [Concomitant]
     Active Substance: ALBUTEROL
     Indication: ASTHMA
  26. HUMALOG [Concomitant]
     Active Substance: INSULIN LISPRO
     Indication: DIABETES MELLITUS
     Dates: start: 1997

REACTIONS (1)
  - Oesophageal adenocarcinoma [Unknown]
